FAERS Safety Report 21706371 (Version 2)
Quarter: 2022Q4

REPORT INFORMATION
  Report Type: Spontaneous
  Country: US (occurrence: US)
  Receive Date: 20221209
  Receipt Date: 20221213
  Transmission Date: 20230113
  Serious: No
  Sender: FDA-Public Use
  Company Number: US-PFIZER INC-202201356475

PATIENT
  Age: 52 Year
  Sex: Female
  Weight: 90.703 kg

DRUGS (5)
  1. BRAFTOVI [Suspect]
     Active Substance: ENCORAFENIB
     Indication: Melanoma recurrent
     Dosage: 450 MG, 1X/DAY(SIX 75 MG BIG CAPSULES), 1X/DAY
     Route: 048
     Dates: start: 2022
  2. MEKTOVI [Suspect]
     Active Substance: BINIMETINIB
     Indication: Melanoma recurrent
     Dosage: 45 MG, 2X/DAY (THREE TABLETS OF 15 MG), 2X/DAY
     Route: 048
     Dates: start: 2022
  3. SERTRALINE [Concomitant]
     Active Substance: SERTRALINE HYDROCHLORIDE
     Indication: Anxiety
     Dosage: UNK, 3X/DAY
  4. METOPROLOL [Concomitant]
     Active Substance: METOPROLOL
     Indication: Hypertension
     Dosage: 25 MG, 1X/DAY
  5. KEPPRA [Concomitant]
     Active Substance: LEVETIRACETAM
     Indication: Seizure
     Dosage: UNK

REACTIONS (7)
  - Skin papilloma [Recovered/Resolved]
  - Rash [Recovered/Resolved]
  - Skin burning sensation [Recovered/Resolved]
  - Rash erythematous [Recovered/Resolved]
  - Dyspnoea [Unknown]
  - Logorrhoea [Unknown]
  - Product label issue [Unknown]

NARRATIVE: CASE EVENT DATE: 20220101
